FAERS Safety Report 12246115 (Version 4)
Quarter: 2016Q2

REPORT INFORMATION
  Report Type: Report from Study
  Country: GR (occurrence: GR)
  Receive Date: 20160407
  Receipt Date: 20160511
  Transmission Date: 20160815
  Serious: Yes (Hospitalization, Other)
  Sender: FDA-Public Use
  Company Number: GR-ABBVIE-16P-066-1597272-00

PATIENT
  Age: 73 Year
  Sex: Female

DRUGS (2)
  1. DUODOPA [Suspect]
     Active Substance: CARBIDOPA\LEVODOPA
     Indication: PARKINSON^S DISEASE
     Dosage: MORNING DOSE: 9ML, CONTINUOUS RATE: 1.5ML/H, EXTRA DOSE: 1.8ML
     Route: 050
     Dates: start: 20151110, end: 20160209
  2. DUODOPA [Suspect]
     Active Substance: CARBIDOPA\LEVODOPA
     Dosage: MORNING DOSE: 9ML, CONTINUOUS RATE: 1.5ML/H, EXTRA DOSE: 1.8ML
     Route: 050
     Dates: start: 20160209

REACTIONS (6)
  - Gastric ulcer [Recovered/Resolved]
  - Asthenia [Recovered/Resolved]
  - Pyrexia [Recovered/Resolved]
  - Dyspnoea [Recovered/Resolved]
  - Pneumonia bacterial [Recovered/Resolved]
  - Stoma site rash [Not Recovered/Not Resolved]

NARRATIVE: CASE EVENT DATE: 20160328
